FAERS Safety Report 6512265-0 (Version None)
Quarter: 2009Q4

REPORT INFORMATION
  Report Type: 
  Country: None (occurrence: None)
  Receive Date: 20091222
  Receipt Date: 20090727
  Transmission Date: 20100525
  Serious: No
  Sender: FDA-Public Use
  Company Number: US-ASTRAZENECA-2009UW21282

PATIENT
  Age: 82 Year
  Sex: Female
  Weight: 53.1 kg

DRUGS (11)
  1. CRESTOR [Suspect]
     Route: 048
     Dates: start: 20090301, end: 20090501
  2. CRESTOR [Suspect]
     Route: 048
     Dates: start: 20090101
  3. EVISTA [Concomitant]
  4. TOPROL-XL [Concomitant]
  5. ASPIRIN [Concomitant]
  6. CALCIUM [Concomitant]
  7. CENTRUM SILVER [Concomitant]
  8. VITAMIN D [Concomitant]
  9. FISH OIL [Concomitant]
  10. PRELIEF [Concomitant]
  11. TYLENOL (CAPLET) [Concomitant]

REACTIONS (2)
  - ASTHENIA [None]
  - URINE OUTPUT INCREASED [None]
